FAERS Safety Report 13068122 (Version 1)
Quarter: 2016Q4

REPORT INFORMATION
  Report Type: Spontaneous
  Country: US (occurrence: US)
  Receive Date: 20161228
  Receipt Date: 20161228
  Transmission Date: 20170207
  Serious: Yes (Death, Other)
  Sender: FDA-Public Use
  Company Number: US-ASTELLAS-2016US050604

PATIENT
  Sex: Male

DRUGS (1)
  1. XTANDI [Suspect]
     Active Substance: ENZALUTAMIDE
     Indication: LYMPHADENOPATHY
     Route: 048
     Dates: start: 20161104, end: 20161220

REACTIONS (2)
  - Neoplasm malignant [Fatal]
  - Off label use [Unknown]
